FAERS Safety Report 17783023 (Version 1)
Quarter: 2020Q2

REPORT INFORMATION
  Report Type: Spontaneous
  Country: US (occurrence: US)
  Receive Date: 20200514
  Receipt Date: 20200514
  Transmission Date: 20200714
  Serious: Yes (Death, Other)
  Sender: FDA-Public Use
  Company Number: US-009507513-2005USA004134

PATIENT
  Sex: Female

DRUGS (2)
  1. FOSAMAX [Suspect]
     Active Substance: ALENDRONATE SODIUM
     Dosage: UNK
     Route: 048
  2. CALCIUM (UNSPECIFIED) (+) CHOLECALCIFEROL [Concomitant]
     Dosage: UNK

REACTIONS (3)
  - Death [Fatal]
  - Hip fracture [Unknown]
  - Ankle fracture [Unknown]
